FAERS Safety Report 6331709-0 (Version None)
Quarter: 2009Q3

REPORT INFORMATION
  Report Type: 
  Country: None (occurrence: None)
  Receive Date: 20090827
  Receipt Date: 20090818
  Transmission Date: 20100115
  Serious: Yes (Hospitalization)
  Sender: FDA-Public Use
  Company Number: US-BAXTER-2009BH012938

PATIENT
  Age: 61 Year
  Sex: Male

DRUGS (15)
  1. DIANEAL [Suspect]
     Indication: PERITONEAL DIALYSIS
     Route: 033
     Dates: start: 20070501
  2. EXTRANEAL [Suspect]
     Indication: PERITONEAL DIALYSIS
     Route: 033
     Dates: end: 20090803
  3. EXTRANEAL [Suspect]
     Route: 033
     Dates: start: 20090805
  4. NPH INSULIN [Concomitant]
     Indication: TYPE 1 DIABETES MELLITUS
     Route: 058
     Dates: start: 20090805
  5. NPH INSULIN [Concomitant]
     Route: 058
     Dates: start: 20090805
  6. PHOSLO [Concomitant]
     Indication: DRUG USE FOR UNKNOWN INDICATION
     Route: 048
     Dates: start: 20090805
  7. HECTOROL [Concomitant]
     Indication: DRUG USE FOR UNKNOWN INDICATION
     Route: 048
     Dates: start: 20090805
  8. EPOGEN [Concomitant]
     Indication: DRUG USE FOR UNKNOWN INDICATION
     Route: 058
     Dates: start: 20090805
  9. LISINOPRIL [Concomitant]
     Indication: DRUG USE FOR UNKNOWN INDICATION
     Route: 048
     Dates: start: 20090805
  10. REGLAN [Concomitant]
     Indication: DRUG USE FOR UNKNOWN INDICATION
     Route: 048
     Dates: start: 20090805
  11. PRAVASTATIN [Concomitant]
     Indication: DRUG USE FOR UNKNOWN INDICATION
     Route: 048
     Dates: start: 20090805
  12. PRILOSEC [Concomitant]
     Indication: DRUG USE FOR UNKNOWN INDICATION
     Route: 048
     Dates: start: 20090805
  13. HUMALOG [Concomitant]
     Indication: DIABETES MELLITUS
     Route: 058
     Dates: start: 20090805
  14. HUMALOG [Concomitant]
     Route: 058
     Dates: start: 20090805
  15. HUMALOG [Concomitant]
     Route: 058
     Dates: start: 20090805

REACTIONS (2)
  - HYPERGLYCAEMIA [None]
  - ORAL PAIN [None]
